FAERS Safety Report 14602977 (Version 1)
Quarter: 2018Q1

REPORT INFORMATION
  Report Type: Spontaneous
  Country: US (occurrence: US)
  Receive Date: 20180305
  Receipt Date: 20180305
  Transmission Date: 20180509
  Serious: No
  Sender: FDA-Public Use
  Company Number: None

PATIENT
  Sex: Male

DRUGS (10)
  1. ATORVASTATIN [Concomitant]
     Active Substance: ATORVASTATIN
  2. OCALIVA [Suspect]
     Active Substance: OBETICHOLIC ACID
     Indication: PRIMARY BILIARY CHOLANGITIS
     Route: 048
     Dates: start: 20171229
  3. LIDO/PRILOCN [Concomitant]
  4. RENA VITE [Concomitant]
  5. ALLOPURINOL. [Concomitant]
     Active Substance: ALLOPURINOL
  6. MAGOX [Concomitant]
  7. AMLODIPINE [Concomitant]
     Active Substance: AMLODIPINE BESYLATE
  8. BUMETANIDE. [Concomitant]
     Active Substance: BUMETANIDE
  9. RENVELA [Concomitant]
     Active Substance: SEVELAMER CARBONATE
  10. CHLORHEX [Concomitant]

REACTIONS (1)
  - Stomatitis [None]
